FAERS Safety Report 7277767-0 (Version None)
Quarter: 2011Q1

REPORT INFORMATION
  Report Type: 
  Country: None (occurrence: None)
  Receive Date: 20110207
  Receipt Date: 20100401
  Transmission Date: 20110831
  Serious: No
  Sender: FDA-Public Use
  Company Number: A0852992A

PATIENT
  Age: 50 Year
  Sex: Female

DRUGS (1)
  1. OLUX E FOAM (EMULSION AEROSOL FOAM) [Suspect]
     Indication: PSORIASIS
     Dosage: 1APP PER DAY
     Route: 061
     Dates: start: 20100101, end: 20100328

REACTIONS (1)
  - HAIR TEXTURE ABNORMAL [None]
